FAERS Safety Report 12200956 (Version 1)
Quarter: 2016Q1

REPORT INFORMATION
  Report Type: Spontaneous
  Country: US (occurrence: US)
  Receive Date: 20160322
  Receipt Date: 20160322
  Transmission Date: 20160526
  Serious: Yes (Other)
  Sender: FDA-Public Use
  Company Number: US-LPDUSPRD-20160237

PATIENT
  Age: 73 Year
  Sex: Female

DRUGS (10)
  1. CYCLOSPORINE INJECTION, USP (866-10) [Suspect]
     Active Substance: CYCLOSPORINE
     Dosage: DOSE NOT PROVIDED
     Route: 065
     Dates: start: 1991
  2. MYCOPHENOLATE MOFETIL. [Suspect]
     Active Substance: MYCOPHENOLATE MOFETIL
     Dosage: DOSE NOT PROVIDED
     Route: 065
     Dates: start: 1998
  3. ENALAPRIL [Concomitant]
     Active Substance: ENALAPRIL
     Dosage: DOSE NOT PROVIDED
     Route: 065
     Dates: start: 1996
  4. BUMETANIDE. [Concomitant]
     Active Substance: BUMETANIDE
     Dosage: DOSE NOT PROVIDED
     Route: 065
     Dates: start: 1996
  5. CARVEDILOL. [Concomitant]
     Active Substance: CARVEDILOL
     Route: 065
     Dates: start: 2004
  6. PREDNISONE. [Suspect]
     Active Substance: PREDNISONE
     Dosage: DOSE NOT PROVIDED
     Route: 064
     Dates: start: 1991, end: 1998
  7. ISOSORBIDE DINITRATE. [Concomitant]
     Active Substance: ISOSORBIDE DINITRATE
     Dosage: DOSE NOT PROVIDED
     Route: 065
  8. HYDRALAZINE [Concomitant]
     Active Substance: HYDRALAZINE HYDROCHLORIDE
     Dosage: DOSE NOT PROVIDED
     Route: 065
     Dates: start: 2006
  9. AZATHIOPRINE. [Concomitant]
     Active Substance: AZATHIOPRINE
     Dosage: DOSE NOT PROVIDED
     Route: 065
     Dates: start: 1991
  10. CANDESARTAN [Concomitant]
     Active Substance: CANDESARTAN
     Dosage: DOSE NOT PROVIDED
     Route: 065
     Dates: start: 2004

REACTIONS (2)
  - Hypertrophic cardiomyopathy [Unknown]
  - Left ventricular hypertrophy [Unknown]
